FAERS Safety Report 19224455 (Version 5)
Quarter: 2021Q4

REPORT INFORMATION
  Report Type: Report from Study
  Country: US (occurrence: US)
  Receive Date: 20210506
  Receipt Date: 20211113
  Transmission Date: 20220303
  Serious: Yes (Hospitalization, Other)
  Sender: FDA-Public Use
  Company Number: NVSC2021US098636

PATIENT
  Sex: Female

DRUGS (5)
  1. COSENTYX [Suspect]
     Active Substance: SECUKINUMAB
     Indication: Psoriasis
     Dosage: 300 MG, QW FOR 5 WEEKS
     Route: 058
  2. COSENTYX [Suspect]
     Active Substance: SECUKINUMAB
     Indication: Psoriatic arthropathy
     Dosage: 300 MG, Q4W
     Route: 058
  3. COSENTYX [Suspect]
     Active Substance: SECUKINUMAB
     Dosage: 150 MG, UNKNOWN
     Route: 065
     Dates: end: 202101
  4. COSENTYX [Suspect]
     Active Substance: SECUKINUMAB
     Dosage: 300 MG, UNKNOWN
     Route: 065
  5. COSENTYX [Suspect]
     Active Substance: SECUKINUMAB
     Dosage: 300 MG, UNKNOWN
     Route: 058

REACTIONS (15)
  - Localised infection [Unknown]
  - Fracture [Recovering/Resolving]
  - Arthralgia [Unknown]
  - Psoriasis [Unknown]
  - Dermal cyst [Unknown]
  - Injury [Unknown]
  - Hypoaesthesia [Unknown]
  - Chest pain [Unknown]
  - Weight decreased [Recovering/Resolving]
  - Pustular psoriasis [Unknown]
  - Skin disorder [Unknown]
  - Feeling hot [Unknown]
  - Erythema [Unknown]
  - Peripheral swelling [Unknown]
  - Inappropriate schedule of product administration [Unknown]
